FAERS Safety Report 5238393-8 (Version None)
Quarter: 2007Q1

REPORT INFORMATION
  Report Type: 
  Country: None (occurrence: None)
  Receive Date: 20061208
  Receipt Date: 20050318
  Transmission Date: 20070707
  Serious: Yes (Other)
  Sender: FDA-Public Use
  Company Number: 2005UW04292

PATIENT
  Age: 58 Year
  Sex: Female
  Weight: 87.543 kg

DRUGS (2)
  1. CRESTOR [Suspect]
     Indication: BLOOD CHOLESTEROL INCREASED
  2. NEXIUM [Concomitant]

REACTIONS (2)
  - HOT FLUSH [None]
  - NAUSEA [None]
